FAERS Safety Report 23739153 (Version 1)
Quarter: 2024Q2

REPORT INFORMATION
  Report Type: Spontaneous
  Country: US (occurrence: US)
  Receive Date: 20240413
  Receipt Date: 20240413
  Transmission Date: 20240715
  Serious: Yes (Hospitalization, Other)
  Sender: FDA-Public Use
  Company Number: US-AMGEN-USASP2024069990

PATIENT
  Age: 71 Year
  Sex: Male

DRUGS (15)
  1. BLINATUMOMAB [Suspect]
     Active Substance: BLINATUMOMAB
     Indication: B-cell type acute leukaemia
     Dosage: UNK (C1D1-C8D1) (8 CYCLES) (ONE CYCLE GIVEN AS 28 DAY INFUSION)
     Route: 065
     Dates: start: 20190524, end: 20200720
  2. BLINATUMOMAB [Suspect]
     Active Substance: BLINATUMOMAB
     Dosage: UNK [REINDUCTION (C1D1)]
     Route: 065
     Dates: start: 20220913
  3. BLINATUMOMAB [Suspect]
     Active Substance: BLINATUMOMAB
     Dosage: UNK [REINDUCTION (C2D1)]
     Route: 065
     Dates: start: 20221027
  4. BLINATUMOMAB [Suspect]
     Active Substance: BLINATUMOMAB
     Dosage: UNK (CONSOLIDATION THERAPY: C1D1)
     Route: 065
     Dates: start: 20221206
  5. BLINATUMOMAB [Suspect]
     Active Substance: BLINATUMOMAB
     Dosage: UNK (CONSOLIDATION THERAPY: C2D1)
     Route: 065
     Dates: start: 20230202
  6. BLINATUMOMAB [Suspect]
     Active Substance: BLINATUMOMAB
     Dosage: UNK (CONSOLIDATION THERAPY: C3D1)
     Route: 065
     Dates: start: 20230417
  7. BLINATUMOMAB [Suspect]
     Active Substance: BLINATUMOMAB
     Dosage: UNK (MAINTENANCE THERAPY: C1D1)
     Route: 065
     Dates: start: 20230616
  8. BLINATUMOMAB [Suspect]
     Active Substance: BLINATUMOMAB
     Dosage: UNK (MAINTENANCE THERAPY: C2D1)
     Route: 065
     Dates: start: 20230906
  9. BLINATUMOMAB [Suspect]
     Active Substance: BLINATUMOMAB
     Dosage: UNK (MAINTENANCE THERAPY: C3D1)
     Route: 065
     Dates: start: 20231204
  10. BLINATUMOMAB [Suspect]
     Active Substance: BLINATUMOMAB
     Dosage: UNK (MAINTENANCE THERAPY: C4D1)
     Route: 065
     Dates: start: 20240201
  11. RITUXIMAB [Suspect]
     Active Substance: RITUXIMAB
     Indication: B-cell type acute leukaemia
     Dosage: UNK, Q4WK (FOR SIX CYCLES)
     Route: 065
     Dates: start: 2022
  12. METHOTREXATE [Concomitant]
     Active Substance: METHOTREXATE
     Indication: Prophylaxis
     Dosage: ONCE PER CYCLE
     Route: 029
  13. METHOTREXATE [Concomitant]
     Active Substance: METHOTREXATE
     Dosage: UNK (C1D1-C7D1( (TOTAL 7 CYCLES)
     Route: 048
     Dates: start: 20200921, end: 20220418
  14. CYTARABINE [Concomitant]
     Active Substance: CYTARABINE
     Indication: Prophylaxis
     Dosage: ONCE PER CYCLE
     Route: 029
  15. HYDROCORTISONE [Concomitant]
     Active Substance: HYDROCORTISONE
     Indication: Prophylaxis
     Dosage: ONCE PER CYCLE
     Route: 029

REACTIONS (11)
  - Neurotoxicity [Unknown]
  - Acute lymphocytic leukaemia recurrent [Recovered/Resolved]
  - Pancytopenia [Unknown]
  - Brain abscess [Recovering/Resolving]
  - Septic shock [Recovering/Resolving]
  - Neutropenia [Unknown]
  - Cytokine release syndrome [Unknown]
  - Drug effective for unapproved indication [Unknown]
  - Antinuclear antibody positive [Recovered/Resolved]
  - Rheumatoid factor increased [Recovered/Resolved]
  - Off label use [Unknown]

NARRATIVE: CASE EVENT DATE: 20220101
